FAERS Safety Report 11165392 (Version 2)
Quarter: 2015Q2

REPORT INFORMATION
  Report Type: Spontaneous
  Country: JP (occurrence: JP)
  Receive Date: 20150604
  Receipt Date: 20150616
  Transmission Date: 20150821
  Serious: Yes (Hospitalization)
  Sender: FDA-Public Use
  Company Number: JP-TEVA-567483ISR

PATIENT
  Age: 69 Year
  Sex: Male

DRUGS (1)
  1. OXALIPLATIN. [Suspect]
     Active Substance: OXALIPLATIN
     Indication: RECTAL CANCER STAGE IV
     Route: 065
     Dates: start: 201201

REACTIONS (7)
  - Hepatic vein stenosis [Unknown]
  - Mesenteric vein thrombosis [Recovered/Resolved]
  - Acute hepatic failure [Recovering/Resolving]
  - Retrograde portal vein flow [Unknown]
  - Ascites [Unknown]
  - Portal vein flow decreased [Unknown]
  - Portal vein thrombosis [Recovered/Resolved]
